FAERS Safety Report 5876861-6 (Version None)
Quarter: 2008Q3

REPORT INFORMATION
  Report Type: 
  Country: None (occurrence: None)
  Receive Date: 20080909
  Receipt Date: 20080909
  Transmission Date: 20090109
  Serious: Yes (Other)
  Sender: FDA-Public Use
  Company Number: None

PATIENT
  Sex: Male

DRUGS (1)
  1. BREATHE RIGHT NASAL STRIPS STRIP (BREATHE RIGHT NASAL STRIP) [Suspect]
     Dosage: UNK / UNK / TOPICAL
     Route: 061

REACTIONS (1)
  - NEOPLASM SKIN [None]
